FAERS Safety Report 11242632 (Version 1)
Quarter: 2015Q3

REPORT INFORMATION
  Report Type: Spontaneous
  Country: IT (occurrence: IT)
  Receive Date: 20150707
  Receipt Date: 20150707
  Transmission Date: 20151125
  Serious: Yes (Hospitalization)
  Sender: FDA-Public Use
  Company Number: IT-ACCORD-031975

PATIENT
  Age: 14 Year
  Sex: Male
  Weight: 75 kg

DRUGS (3)
  1. CYTARABINE/CYTARABINE HYDROCHLORIDE/CYTARABINE OCFOSFATE [Suspect]
     Active Substance: CYTARABINE
     Indication: ACUTE LYMPHOCYTIC LEUKAEMIA
     Route: 042
     Dates: start: 20140101, end: 20150620
  2. METHOTREXATE [Suspect]
     Active Substance: METHOTREXATE
     Indication: ACUTE LYMPHOCYTIC LEUKAEMIA
     Dosage: ALSO RECEIVED FROM 01-JAN-2014 TO 20-JUN-2015 (536 DAY).
     Route: 042
     Dates: start: 20150101, end: 20150620
  3. PURINETHOL [Suspect]
     Active Substance: MERCAPTOPURINE
     Indication: ACUTE LYMPHOCYTIC LEUKAEMIA
     Dosage: STRENGTH: 50 MG.?ALSO RECEIVED FROM 01-JAN-2014 TO 20-FEB-2015 (416 DAY).
     Route: 048
     Dates: start: 20150101, end: 20150620

REACTIONS (5)
  - Mucosal inflammation [Recovered/Resolved]
  - Thrombocytopenia [Recovering/Resolving]
  - Epistaxis [Recovered/Resolved]
  - Haematoma [Recovering/Resolving]
  - Petechiae [Recovered/Resolved]

NARRATIVE: CASE EVENT DATE: 20150201
